FAERS Safety Report 25159785 (Version 1)
Quarter: 2025Q2

REPORT INFORMATION
  Report Type: Spontaneous
  Country: US (occurrence: US)
  Receive Date: 20250404
  Receipt Date: 20250404
  Transmission Date: 20250716
  Serious: Yes (Other)
  Sender: RANBAXY
  Company Number: US-SUN PHARMACEUTICAL INDUSTRIES LTD-2025R1-501803

PATIENT
  Age: 32 Year
  Sex: Male

DRUGS (2)
  1. ASPIRIN [Suspect]
     Active Substance: ASPIRIN
     Indication: Cardiac ventricular thrombosis
     Route: 065
  2. RIVAROXABAN [Suspect]
     Active Substance: RIVAROXABAN
     Indication: Cardiac ventricular thrombosis
     Route: 065

REACTIONS (4)
  - Drug ineffective [Unknown]
  - Dysarthria [Unknown]
  - Asthenia [Unknown]
  - Facial paralysis [Unknown]
